FAERS Safety Report 9629533 (Version 1)
Quarter: 2013Q4

REPORT INFORMATION
  Report Type: Spontaneous
  Country: IN (occurrence: IN)
  Receive Date: 20131017
  Receipt Date: 20131017
  Transmission Date: 20140711
  Serious: Yes (Other)
  Sender: FDA-Public Use
  Company Number: PHHY2013IN113786

PATIENT
  Age: 65 Year
  Sex: Male

DRUGS (3)
  1. 5-FLUOROURACIL [Suspect]
     Indication: GASTROOESOPHAGEAL CANCER
     Route: 040
  2. CISPLATIN [Concomitant]
     Indication: GASTROOESOPHAGEAL CANCER
  3. FOLINIC ACID [Concomitant]
     Indication: GASTROOESOPHAGEAL CANCER

REACTIONS (6)
  - Arteriospasm coronary [Recovering/Resolving]
  - Chest pain [Recovering/Resolving]
  - Hyperhidrosis [Recovering/Resolving]
  - Burning sensation [Recovering/Resolving]
  - Bundle branch block left [Recovered/Resolved]
  - Electrocardiogram ST segment elevation [Recovered/Resolved]
